FAERS Safety Report 16153191 (Version 1)
Quarter: 2019Q2

REPORT INFORMATION
  Report Type: Spontaneous
  Country: FR (occurrence: FR)
  Receive Date: 20190403
  Receipt Date: 20190403
  Transmission Date: 20190711
  Serious: Yes (Hospitalization)
  Sender: FDA-Public Use
  Company Number: FR-ACCORD-117372

PATIENT
  Age: 82 Year
  Sex: Female

DRUGS (4)
  1. ALPRAZOLAM. [Suspect]
     Active Substance: ALPRAZOLAM
     Indication: DEPRESSION
     Route: 048
     Dates: start: 201810, end: 20190113
  2. ESCITALOPRAM [Suspect]
     Active Substance: ESCITALOPRAM OXALATE
     Indication: DEPRESSION
     Route: 048
     Dates: start: 201810, end: 20190111
  3. XGEVA [Suspect]
     Active Substance: DENOSUMAB
     Indication: METASTASES TO BONE
     Route: 058
     Dates: start: 20181206
  4. AROMASINE [Concomitant]
     Active Substance: EXEMESTANE
     Indication: BREAST CANCER
     Dosage: 25 MG, COATED TABLET
     Route: 048
     Dates: start: 20181030

REACTIONS (1)
  - Rash pruritic [Recovering/Resolving]

NARRATIVE: CASE EVENT DATE: 20190105
